FAERS Safety Report 8299819-9 (Version None)
Quarter: 2012Q2

REPORT INFORMATION
  Report Type: 
  Country: None (occurrence: None)
  Receive Date: 20120419
  Receipt Date: 20120419
  Transmission Date: 20120825
  Serious: Yes (Life-Threatening)
  Sender: FDA-Public Use
  Company Number: None

PATIENT
  Age: 57 Year
  Sex: Female
  Weight: 66.678 kg

DRUGS (2)
  1. PROGESTERONE [Concomitant]
  2. PROGESTERONE [Suspect]
     Indication: MENOPAUSE
     Dosage: 1 GRAM -4 CLICKS-
     Dates: start: 20120411, end: 20120417

REACTIONS (5)
  - ABDOMINAL DISCOMFORT [None]
  - DEVICE MALFUNCTION [None]
  - PRODUCT SUBSTITUTION ISSUE [None]
  - MALAISE [None]
  - NAUSEA [None]
